FAERS Safety Report 9612986 (Version 1)
Quarter: 2013Q4

REPORT INFORMATION
  Report Type: Spontaneous
  Country: US (occurrence: US)
  Receive Date: 20131010
  Receipt Date: 20131010
  Transmission Date: 20140711
  Serious: No
  Sender: FDA-Public Use
  Company Number: US-009507513-1310USA004204

PATIENT
  Age: 63 Year
  Sex: Male

DRUGS (8)
  1. JANUMET [Suspect]
     Indication: TYPE 2 DIABETES MELLITUS
     Dosage: UNK, BID
     Route: 048
     Dates: start: 20130910, end: 20131008
  2. JANUMET XR [Suspect]
     Dosage: UNK, QD
     Route: 048
  3. JANUMET [Suspect]
     Dosage: UNK, BID
     Route: 048
  4. GLIMEPIRIDE [Concomitant]
  5. METFORMIN [Concomitant]
  6. SOTALOL HYDROCHLORIDE [Concomitant]
  7. SIMVASTATIN [Concomitant]
  8. LISINOPRIL [Concomitant]

REACTIONS (2)
  - Cataract [Not Recovered/Not Resolved]
  - Impaired driving ability [Not Recovered/Not Resolved]
